FAERS Safety Report 19037602 (Version 2)
Quarter: 2022Q2

REPORT INFORMATION
  Report Type: Spontaneous
  Country: NL (occurrence: NL)
  Receive Date: 20210322
  Receipt Date: 20220413
  Transmission Date: 20220721
  Serious: Yes (Life-Threatening, Hospitalization, Other)
  Sender: FDA-Public Use
  Company Number: NL-BAXTER-2021BAX003820

PATIENT
  Age: 52 Year
  Sex: Female

DRUGS (6)
  1. CARBOPLATIN [Suspect]
     Active Substance: CARBOPLATIN
     Indication: Breast cancer
     Dosage: 1600 MG/M2 HIGH DOSE CTC REGIMEN DIVIDED OVER 4 DAYS
     Route: 065
  2. CYCLOPHOSPHAMIDE [Suspect]
     Active Substance: CYCLOPHOSPHAMIDE
     Indication: Breast cancer
     Dosage: 6 G/M2 HIGH DOSE CTC REGIMEN DIVIDED OVER 4 DAYS
     Route: 065
  3. CYCLOPHOSPHAMIDE [Suspect]
     Active Substance: CYCLOPHOSPHAMIDE
     Dosage: 500 MG/M2, DAILY EVERY 3 WEEKS, FOUR COURSES DAILY
  4. THIOTEPA [Suspect]
     Active Substance: THIOTEPA
     Indication: Breast cancer
     Dosage: 480 MG/M2 HIGH DOSE CTC REGIMEN DIVIDED OVER 4 DAYS
     Route: 065
  5. EPIRUBICIN [Concomitant]
     Active Substance: EPIRUBICIN
     Indication: Breast cancer
     Dosage: 90 MG/M2, EVERY 3 WEEKS, FOUR COURSES DAILY
     Route: 065
  6. FLUOROURACIL [Concomitant]
     Active Substance: FLUOROURACIL
     Indication: Breast cancer
     Dosage: 500 MG/M2, EVERY 3 WEEKS
     Route: 065

REACTIONS (3)
  - Pericarditis constrictive [Recovered/Resolved]
  - Pericardial effusion [Recovered/Resolved]
  - Off label use [Unknown]
